FAERS Safety Report 7625940-1 (Version None)
Quarter: 2011Q3

REPORT INFORMATION
  Report Type: 
  Country: None (occurrence: None)
  Receive Date: 20110721
  Receipt Date: 20110721
  Transmission Date: 20111222
  Serious: Yes (Other)
  Sender: FDA-Public Use
  Company Number: None

PATIENT
  Age: 23 Year
  Sex: Male

DRUGS (3)
  1. LATUDA [Concomitant]
     Dosage: 80 MG
     Route: 048
     Dates: start: 20110617, end: 20110620
  2. LATUDA [Suspect]
     Indication: PSYCHOTIC DISORDER
     Dosage: 40 MG
     Route: 048
     Dates: start: 20110617, end: 20110620
  3. CENTRUM [Interacting]

REACTIONS (1)
  - PRIAPISM [None]
